FAERS Safety Report 12842705 (Version 1)
Quarter: 2016Q4

REPORT INFORMATION
  Report Type: Spontaneous
  Country: US (occurrence: US)
  Receive Date: 20161012
  Receipt Date: 20161012
  Transmission Date: 20170207
  Serious: No
  Sender: FDA-Public Use
  Company Number: None

PATIENT
  Age: 70 Year
  Sex: Male

DRUGS (1)
  1. SIROLIMUS TAB 1MG [Suspect]
     Active Substance: SIROLIMUS

REACTIONS (3)
  - Stomatitis [None]
  - Condition aggravated [None]
  - Renal neoplasm [None]

NARRATIVE: CASE EVENT DATE: 20161012
